FAERS Safety Report 14543514 (Version 1)
Quarter: 2018Q1

REPORT INFORMATION
  Report Type: Spontaneous
  Country: CA (occurrence: CA)
  Receive Date: 20180216
  Receipt Date: 20180216
  Transmission Date: 20180509
  Serious: Yes (Life-Threatening, Disabling, Other)
  Sender: FDA-Public Use
  Company Number: CA-TEVA-2018-CA-857571

PATIENT
  Age: 40 Year
  Sex: Female
  Weight: 113.5 kg

DRUGS (7)
  1. RISPERIDONE. [Concomitant]
     Active Substance: RISPERIDONE
  2. SANDOZ CIPROFLOXACIN [Suspect]
     Active Substance: CIPROFLOXACIN
     Indication: UPPER RESPIRATORY TRACT INFECTION
     Route: 048
  3. APO-QUETIAPINE [Suspect]
     Active Substance: QUETIAPINE
     Indication: SCHIZOPHRENIA
     Route: 048
  4. EPIVAL [Concomitant]
     Active Substance: DIVALPROEX SODIUM
  5. TEVA-QUETIAPINE [Suspect]
     Active Substance: QUETIAPINE
     Indication: SCHIZOPHRENIA
     Route: 048
  6. AMOXICILLIN. [Suspect]
     Active Substance: AMOXICILLIN
     Indication: NASOPHARYNGITIS
     Route: 048
  7. ZYPREXA [Concomitant]
     Active Substance: OLANZAPINE

REACTIONS (8)
  - Blood creatinine increased [Not Recovered/Not Resolved]
  - Diarrhoea [Not Recovered/Not Resolved]
  - Flank pain [Not Recovered/Not Resolved]
  - Nausea [Not Recovered/Not Resolved]
  - Infection [Not Recovered/Not Resolved]
  - Overweight [Not Recovered/Not Resolved]
  - Hypertension [Not Recovered/Not Resolved]
  - Renal injury [Not Recovered/Not Resolved]
